FAERS Safety Report 9178380 (Version 1)
Quarter: 2012Q4

REPORT INFORMATION
  Report Type: 
  Country: US (occurrence: US)
  Receive Date: 20121029
  Receipt Date: 20121029
  Transmission Date: 20130627
  Serious: Yes (Hospitalization)
  Sender: FDA-Public Use
  Company Number: US-BAYER-2012-112566

PATIENT
  Age: 37 Year
  Sex: Female

DRUGS (8)
  1. YAZ [Suspect]
  2. YASMIN [Suspect]
  3. MECLIZINE [Concomitant]
     Dosage: 25 mg, UNK
     Route: 048
     Dates: start: 20071023
  4. PROPOXYPHENE -N WITH APAP [Concomitant]
     Indication: RECTAL PAIN
     Dosage: UNK
     Route: 048
     Dates: start: 20071023
  5. NASONEX [Concomitant]
     Dosage: 50 �g, UNK
     Route: 045
     Dates: start: 20071105
  6. VYTORIN [Concomitant]
     Dosage: 10/40
     Route: 048
     Dates: start: 20071105
  7. ZYRTEC [Concomitant]
     Dosage: 5 mg, daily
     Route: 048
     Dates: start: 20071105
  8. HYDROCODONE W/APAP [Concomitant]
     Dosage: 7.5/500mg
     Route: 048
     Dates: start: 20071115

REACTIONS (1)
  - Pulmonary embolism [None]
